FAERS Safety Report 5861375-X (Version None)
Quarter: 2008Q3

REPORT INFORMATION
  Report Type: 
  Country: None (occurrence: None)
  Receive Date: 20080827
  Receipt Date: 20080507
  Transmission Date: 20090109
  Serious: No
  Sender: FDA-Public Use
  Company Number: US-ABBOTT-08P-163-0450631-00

PATIENT
  Sex: Female

DRUGS (3)
  1. COATED PDS [Suspect]
     Indication: HYPERLIPIDAEMIA
     Dosage: 500 MG DAILY
     Route: 048
     Dates: start: 20080301, end: 20080401
  2. NIASPAN [Suspect]
     Indication: HYPERLIPIDAEMIA
     Dosage: 1000 MG DAILY
     Route: 048
     Dates: start: 20080401
  3. NIASPAN [Suspect]

REACTIONS (1)
  - PALPITATIONS [None]
